FAERS Safety Report 17066614 (Version 1)
Quarter: 2019Q4

REPORT INFORMATION
  Report Type: Spontaneous
  Country: HR (occurrence: HR)
  Receive Date: 20191122
  Receipt Date: 20191122
  Transmission Date: 20200122
  Serious: Yes (Hospitalization)
  Sender: FDA-Public Use
  Company Number: HR-ELI_LILLY_AND_COMPANY-HR201911004998

PATIENT
  Age: 51 Year
  Sex: Male

DRUGS (1)
  1. DULOXETINE HYDROCHLORIDE. [Suspect]
     Active Substance: DULOXETINE HYDROCHLORIDE
     Indication: DEPRESSION
     Route: 048
     Dates: start: 20190617, end: 20190930

REACTIONS (2)
  - Coagulopathy [Recovered/Resolved]
  - Subcutaneous haematoma [Recovered/Resolved]

NARRATIVE: CASE EVENT DATE: 20191010
